FAERS Safety Report 6215536-0 (Version None)
Quarter: 2009Q2

REPORT INFORMATION
  Report Type: 
  Country: None (occurrence: None)
  Receive Date: 20090605
  Receipt Date: 20090529
  Transmission Date: 20091009
  Serious: Yes (Other)
  Sender: FDA-Public Use
  Company Number: US-JNJCH-2009014968

PATIENT
  Age: 61 Year
  Sex: Female
  Weight: 70.3 kg

DRUGS (3)
  1. NEOSPORIN PLUS PAIN RELIEF MAXIMUM STRENGTH [Suspect]
     Indication: WOUND
     Dosage: TEXT:SMALL AMOUNT ONCE
     Route: 061
     Dates: start: 20090528, end: 20090528
  2. ASCORBIC ACID [Concomitant]
     Indication: VITAMIN SUPPLEMENTATION
     Dosage: TEXT:ONE TABLET DAILY
     Route: 065
  3. LOVAZA [Concomitant]
     Indication: VITAMIN SUPPLEMENTATION
     Dosage: TEXT:TWO CAPSULES DAILY
     Route: 065

REACTIONS (2)
  - ABASIA [None]
  - APPLICATION SITE REACTION [None]
